FAERS Safety Report 10692087 (Version 1)
Quarter: 2015Q1

REPORT INFORMATION
  Report Type: Spontaneous
  Country: DE (occurrence: DE)
  Receive Date: 20150106
  Receipt Date: 20150106
  Transmission Date: 20150720
  Serious: Yes (Hospitalization)
  Sender: FDA-Public Use
  Company Number: DE-LUPIN PHARMACEUTICALS INC.-E2B_00002819

PATIENT
  Age: 77 Year
  Sex: Male

DRUGS (9)
  1. LAMOTRIGIN [Suspect]
     Active Substance: LAMOTRIGINE
     Route: 048
     Dates: start: 20140620, end: 20140625
  2. LAMOTRIGIN [Suspect]
     Active Substance: LAMOTRIGINE
     Route: 048
     Dates: start: 20140702, end: 20140708
  3. LEXOTANIL 6 [Concomitant]
     Indication: PRODUCT USED FOR UNKNOWN INDICATION
     Dosage: 4,5
     Dates: start: 201310, end: 20140608
  4. LEXOTANIL 6 [Concomitant]
     Dosage: 3
     Dates: start: 20140609, end: 20140614
  5. LAMOTRIGIN [Suspect]
     Active Substance: LAMOTRIGINE
     Indication: PRODUCT USED FOR UNKNOWN INDICATION
     Dosage: 25-125 MG / D
     Route: 048
     Dates: start: 20131201, end: 20140611
  6. LAMOTRIGIN [Suspect]
     Active Substance: LAMOTRIGINE
     Route: 048
     Dates: start: 20140626, end: 20140701
  7. LAMOTRIGIN [Suspect]
     Active Substance: LAMOTRIGINE
     Route: 048
     Dates: start: 20140612, end: 20140619
  8. MARCUMAR [Concomitant]
     Active Substance: PHENPROCOUMON
     Indication: PRODUCT USED FOR UNKNOWN INDICATION
     Dosage: NACH INR
     Route: 065
     Dates: start: 2013
  9. LEXOTANIL 6 [Concomitant]
     Dosage: 1,5
     Dates: start: 20140615, end: 20140625

REACTIONS (1)
  - Dyskinesia [Recovering/Resolving]

NARRATIVE: CASE EVENT DATE: 20131230
